FAERS Safety Report 21188501 (Version 1)
Quarter: 2022Q3

REPORT INFORMATION
  Report Type: Spontaneous
  Country: US (occurrence: US)
  Receive Date: 20220809
  Receipt Date: 20220809
  Transmission Date: 20221027
  Serious: No
  Sender: FDA-Public Use
  Company Number: US-IGSA-BIG0014900

PATIENT
  Age: 30 Year
  Sex: Female

DRUGS (27)
  1. GAMUNEX-C [Suspect]
     Active Substance: HUMAN IMMUNOGLOBULIN G
     Indication: Product used for unknown indication
     Dosage: UNK, UNKNOWN
     Route: 042
     Dates: start: 20210430
  2. GAMUNEX-C [Suspect]
     Active Substance: HUMAN IMMUNOGLOBULIN G
     Dosage: UNK UNK, UNKNOWN
     Route: 042
     Dates: start: 20210429
  3. DUPIXENT [Suspect]
     Active Substance: DUPILUMAB
     Indication: Orthostatic hypotension
     Dosage: 300 MILLIGRAM, Q.O.WK.
     Route: 058
     Dates: start: 202005
  4. DUPIXENT [Suspect]
     Active Substance: DUPILUMAB
     Indication: Migraine without aura
  5. DUPIXENT [Suspect]
     Active Substance: DUPILUMAB
     Indication: Cerebral palsy
  6. DUPIXENT [Suspect]
     Active Substance: DUPILUMAB
     Indication: Autonomic neuropathy
  7. DUPIXENT [Suspect]
     Active Substance: DUPILUMAB
     Indication: Autonomic neuropathy
  8. DUPIXENT [Suspect]
     Active Substance: DUPILUMAB
     Indication: Product use in unapproved indication
  9. LIDOCAINE [Suspect]
     Active Substance: LIDOCAINE
     Indication: Product used for unknown indication
     Dosage: UNK UNK, UNKNOWN
  10. ALLEGRA ALLERGY [Concomitant]
     Active Substance: FEXOFENADINE HYDROCHLORIDE
  11. VITAMIN D3 [Concomitant]
     Active Substance: CHOLECALCIFEROL
  12. FIBERLAX [Concomitant]
  13. AMITRIPTYLINE [Concomitant]
     Active Substance: AMITRIPTYLINE
  14. GABAPENTIN [Concomitant]
     Active Substance: GABAPENTIN
  15. AMERGE [Concomitant]
     Active Substance: NARATRIPTAN HYDROCHLORIDE
  16. FLONASE ALLERGY RELIEF [Concomitant]
     Active Substance: FLUTICASONE PROPIONATE
  17. PROPRANOLOL HYDROCHLORIDE [Concomitant]
     Active Substance: PROPRANOLOL HYDROCHLORIDE
  18. BOTOX [Concomitant]
     Active Substance: ONABOTULINUMTOXINA
  19. SODIUM CHLORIDE [Concomitant]
     Active Substance: SODIUM CHLORIDE
  20. EPINEPHRINE [Concomitant]
     Active Substance: EPINEPHRINE
  21. HEPARIN [Concomitant]
     Active Substance: HEPARIN SODIUM
  22. LIDOCAINE [Concomitant]
     Active Substance: LIDOCAINE
  23. ACETAMINOPHEN [Concomitant]
     Active Substance: ACETAMINOPHEN
  24. DIPHENHYDRAMINE [Concomitant]
     Active Substance: DIPHENHYDRAMINE
  25. MIRALAX [Concomitant]
     Active Substance: POLYETHYLENE GLYCOL 3350
  26. VITAMIN B COMPLEX [Concomitant]
     Active Substance: CYANOCOBALAMIN\DEXPANTHENOL\NIACINAMIDE\PYRIDOXINE HYDROCHLORIDE\RIBOFLAVIN 5^-PHOSPHATE SODIUM\THIA
  27. SODIUM CHLORIDE [Concomitant]
     Active Substance: SODIUM CHLORIDE

REACTIONS (5)
  - Feeling abnormal [Unknown]
  - Headache [Unknown]
  - Migraine [Unknown]
  - Fatigue [Unknown]
  - Decreased appetite [Unknown]

NARRATIVE: CASE EVENT DATE: 20210503
